FAERS Safety Report 4379209-1 (Version None)
Quarter: 2004Q2

REPORT INFORMATION
  Report Type: 
  Country: None (occurrence: None)
  Receive Date: 20040610
  Receipt Date: 20040601
  Transmission Date: 20050107
  Serious: Yes (Other)
  Sender: FDA-Public Use
  Company Number: 2004IM000674

PATIENT
  Age: 21 Year
  Sex: Male

DRUGS (1)
  1. ACTIMMUNE [Suspect]
     Indication: CHRONIC GRANULOMATOUS DISEASE
     Dosage: SUBCUTANEOUS
     Route: 058
     Dates: start: 20040501, end: 20040501

REACTIONS (1)
  - ARRHYTHMIA SUPRAVENTRICULAR [None]
